FAERS Safety Report 21866230 (Version 4)
Quarter: 2023Q1

REPORT INFORMATION
  Report Type: Spontaneous
  Country: US (occurrence: US)
  Receive Date: 20230116
  Receipt Date: 20230308
  Transmission Date: 20230418
  Serious: No
  Sender: FDA-Public Use
  Company Number: US-Calliditas-2022CAL00638

PATIENT
  Age: 68 Year
  Sex: Male

DRUGS (13)
  1. TARPEYO [Suspect]
     Active Substance: BUDESONIDE
     Indication: IgA nephropathy
     Dosage: 16MG (4 MG CAPSULES) ONCE DAILY
     Route: 048
     Dates: start: 20221205
  2. METOPROLOL [Concomitant]
     Active Substance: METOPROLOL
  3. NIFEDIPINE [Concomitant]
     Active Substance: NIFEDIPINE
  4. FEBUXOSTAT [Concomitant]
     Active Substance: FEBUXOSTAT
  5. LISINOPRIL [Concomitant]
     Active Substance: LISINOPRIL
  6. GARLIC COMPLEX [Concomitant]
  7. FISH OIL [Concomitant]
     Active Substance: FISH OIL
  8. VITAMINS [Concomitant]
     Active Substance: VITAMINS
  9. VITAMIN B COMPLEX [Concomitant]
     Active Substance: CYANOCOBALAMIN\DEXPANTHENOL\NIACINAMIDE\PYRIDOXINE HYDROCHLORIDE\RIBOFLAVIN 5^-PHOSPHATE SODIUM\THIA
  10. CHOLECALCIFEROL [Concomitant]
     Active Substance: CHOLECALCIFEROL
  11. COENZYME Q10 [Concomitant]
     Active Substance: DIETARY SUPPLEMENT\UBIDECARENONE
  12. REPATHA [Concomitant]
     Active Substance: EVOLOCUMAB
     Dosage: 140MG/ML INJECTION 1 BOX TWICE A WEEK
  13. EZETIMIBE [Concomitant]
     Active Substance: EZETIMIBE
     Dosage: 10 MG

REACTIONS (5)
  - Gastrointestinal disorder [Recovered/Resolved]
  - Diarrhoea [Recovered/Resolved]
  - Oropharyngeal pain [Recovered/Resolved]
  - Product residue present [Recovered/Resolved]
  - COVID-19 [Unknown]

NARRATIVE: CASE EVENT DATE: 20230116
